FAERS Safety Report 5031666-3 (Version None)
Quarter: 2006Q2

REPORT INFORMATION
  Report Type: 
  Country: None (occurrence: None)
  Receive Date: 20060616
  Receipt Date: 20060606
  Transmission Date: 20061013
  Serious: Yes (Death)
  Sender: FDA-Public Use
  Company Number: USA-2006-0024388

PATIENT
  Sex: Female

DRUGS (2)
  1. OXYCODONE HCL [Suspect]
  2. ETHANOL (ETHANOL) [Suspect]

REACTIONS (2)
  - MULTIPLE DRUG OVERDOSE [None]
  - VICTIM OF HOMICIDE [None]
